FAERS Safety Report 6312061-3 (Version None)
Quarter: 2009Q3

REPORT INFORMATION
  Report Type: 
  Country: None (occurrence: None)
  Receive Date: 20090813
  Receipt Date: 20090813
  Transmission Date: 20100115
  Serious: Yes (Hospitalization)
  Sender: FDA-Public Use
  Company Number: None

PATIENT
  Age: 56 Year
  Sex: Female
  Weight: 107.9561 kg

DRUGS (1)
  1. DEPAKOTE [Suspect]

REACTIONS (3)
  - PAIN [None]
  - PANCREATITIS [None]
  - STENT PLACEMENT [None]
